FAERS Safety Report 4683370-9 (Version None)
Quarter: 2005Q2

REPORT INFORMATION
  Report Type: 
  Country: None (occurrence: None)
  Receive Date: 20050606
  Receipt Date: 20050606
  Transmission Date: 20051028
  Serious: Yes (Hospitalization)
  Sender: FDA-Public Use
  Company Number: None

PATIENT
  Sex: Male

DRUGS (12)
  1. AVASTIN [Suspect]
     Indication: HEPATIC NEOPLASM MALIGNANT
     Dosage: 5 MG/KG Q21DAYS INTRAVENOU
     Route: 042
     Dates: start: 20050331, end: 20050512
  2. OXALIPLATIN [Concomitant]
  3. XELODA [Concomitant]
  4. PERCOCET [Concomitant]
  5. MULTI-VITAMIN [Concomitant]
  6. LACTULOSE [Concomitant]
  7. OXYCONTIN [Concomitant]
  8. STOOL SOFTENERS [Concomitant]
  9. LASIX [Concomitant]
  10. ZOFRAN [Concomitant]
  11. ALDACTONE [Concomitant]
  12. DIFLUCAN [Concomitant]

REACTIONS (2)
  - HAEMOPTYSIS [None]
  - HAEMORRHAGE [None]
